FAERS Safety Report 6653980-8 (Version None)
Quarter: 2010Q1

REPORT INFORMATION
  Report Type: 
  Country: None (occurrence: None)
  Receive Date: 20100324
  Receipt Date: 20100316
  Transmission Date: 20100710
  Serious: Yes (Hospitalization, Other)
  Sender: FDA-Public Use
  Company Number: 2009SP042166

PATIENT
  Age: 72 Year
  Sex: Female
  Weight: 102 kg

DRUGS (4)
  1. ORGARAN [Suspect]
     Indication: THROMBOSIS PROPHYLAXIS
     Dosage: 750 IU; BID; SC
     Route: 058
     Dates: start: 20091214, end: 20091218
  2. HEPARIN [Concomitant]
  3. LOW-MOLECULAR HEPARINE (LOW MOLECULAR WEIGHT HEPARIN) [Concomitant]
  4. ARGATRA (ARGATROBAN) [Concomitant]

REACTIONS (2)
  - DRUG LEVEL BELOW THERAPEUTIC [None]
  - PERIPHERAL EMBOLISM [None]
